FAERS Safety Report 9300603 (Version 1)
Quarter: 2013Q2

REPORT INFORMATION
  Report Type: Spontaneous
  Country: GB (occurrence: GB)
  Receive Date: 20130521
  Receipt Date: 20130521
  Transmission Date: 20140414
  Serious: Yes (Disabling, Other)
  Sender: FDA-Public Use
  Company Number: GB-TEVA-405680ISR

PATIENT
  Age: 54 Year
  Sex: Male
  Weight: 83 kg

DRUGS (13)
  1. ATENOLOL [Suspect]
     Route: 048
     Dates: start: 2003
  2. PIOGLITAZONE [Suspect]
  3. ASPIRIN COATED [Concomitant]
  4. CAPOTEN [Concomitant]
  5. THYROXINE [Concomitant]
  6. BYETTA [Concomitant]
  7. GLICLAZIDE [Concomitant]
  8. METFORMIN [Concomitant]
  9. VIAGRA [Concomitant]
  10. VITAMIN B12 [Concomitant]
  11. MULTIVITAMIN PREPARATION [Concomitant]
  12. IRON [Concomitant]
  13. COD LIVER OIL [Concomitant]

REACTIONS (8)
  - Lethargy [Not Recovered/Not Resolved]
  - Paraesthesia [Not Recovered/Not Resolved]
  - Erectile dysfunction [Not Recovered/Not Resolved]
  - Loss of libido [Not Recovered/Not Resolved]
  - Anorgasmia [Not Recovered/Not Resolved]
  - Blood glucose abnormal [Recovering/Resolving]
  - Condition aggravated [Unknown]
  - Hand-arm vibration syndrome [Unknown]
